FAERS Safety Report 6531831-X (Version None)
Quarter: 2010Q1

REPORT INFORMATION
  Report Type: 
  Country: None (occurrence: None)
  Receive Date: 20100108
  Receipt Date: 20091230
  Transmission Date: 20100710
  Serious: Yes (Life-Threatening, Other)
  Sender: FDA-Public Use
  Company Number: FR-BRISTOL-MYERS SQUIBB COMPANY-14923403

PATIENT
  Age: 70 Year
  Sex: Male

DRUGS (10)
  1. GLUCOPHAGE [Suspect]
     Indication: TYPE 2 DIABETES MELLITUS
     Route: 048
     Dates: end: 20080102
  2. LASIX [Suspect]
  3. ALLOPURINOL [Suspect]
  4. LAMALINE [Suspect]
  5. AMLOR [Concomitant]
  6. AMIODARONE HCL [Concomitant]
  7. OMEPRAZOLE [Concomitant]
  8. DEXERYL [Concomitant]
  9. KETOPROFEN [Concomitant]
  10. NOCTRAN [Concomitant]

REACTIONS (2)
  - LACTIC ACIDOSIS [None]
  - RENAL FAILURE [None]
